FAERS Safety Report 13046027 (Version 1)
Quarter: 2016Q4

REPORT INFORMATION
  Report Type: Report from Study
  Country: PR (occurrence: PR)
  Receive Date: 20161220
  Receipt Date: 20161220
  Transmission Date: 20170207
  Serious: Yes (Death, Hospitalization)
  Sender: FDA-Public Use
  Company Number: PR-BAYER-2015-185381

PATIENT
  Age: 36 Year
  Sex: Female

DRUGS (4)
  1. ADEMPAS [Suspect]
     Active Substance: RIOCIGUAT
     Indication: PULMONARY ARTERIAL HYPERTENSION
     Dosage: 2.5 MG, TID
     Route: 048
     Dates: start: 20160414, end: 20161129
  2. ADEMPAS [Suspect]
     Active Substance: RIOCIGUAT
     Indication: PULMONARY ARTERIAL HYPERTENSION
     Dosage: UNK
     Dates: start: 20150209
  3. ADEMPAS [Suspect]
     Active Substance: RIOCIGUAT
     Indication: PULMONARY ARTERIAL HYPERTENSION
     Dosage: 1.5 MG, TID
     Route: 048
  4. ADEMPAS [Suspect]
     Active Substance: RIOCIGUAT
     Indication: PULMONARY ARTERIAL HYPERTENSION
     Dosage: 2.5 MG, TID
     Route: 048
     Dates: start: 20150703

REACTIONS (7)
  - Syncope [None]
  - Dizziness [None]
  - Fall [None]
  - Death [Fatal]
  - Blood pressure decreased [Unknown]
  - Abdominal discomfort [None]
  - Contusion [None]

NARRATIVE: CASE EVENT DATE: 20150430
